FAERS Safety Report 5833361-7 (Version None)
Quarter: 2008Q3

REPORT INFORMATION
  Report Type: 
  Country: None (occurrence: None)
  Receive Date: 20080805
  Receipt Date: 20080722
  Transmission Date: 20090109
  Serious: Yes (Other)
  Sender: FDA-Public Use
  Company Number: US-BAYER-200829648NA

PATIENT
  Age: 56 Year
  Sex: Female
  Weight: 63 kg

DRUGS (5)
  1. MAGNEVIST [Suspect]
     Indication: NUCLEAR MAGNETIC RESONANCE IMAGING BRAIN
     Dosage: TOTAL DAILY DOSE: 13 ML
     Route: 042
     Dates: start: 20080722, end: 20080722
  2. XANAX [Concomitant]
  3. SYNTHROID [Concomitant]
  4. PAXIL [Concomitant]
  5. PREVACOL [Concomitant]

REACTIONS (7)
  - ABDOMINAL DISCOMFORT [None]
  - BLOOD PRESSURE INCREASED [None]
  - CHILLS [None]
  - DIARRHOEA [None]
  - DIZZINESS [None]
  - GASTROINTESTINAL PAIN [None]
  - URTICARIA [None]
